FAERS Safety Report 20392570 (Version 1)
Quarter: 2022Q1

REPORT INFORMATION
  Report Type: Spontaneous
  Country: CN (occurrence: CN)
  Receive Date: 20220128
  Receipt Date: 20220128
  Transmission Date: 20220423
  Serious: Yes (Hospitalization, Other)
  Sender: FDA-Public Use
  Company Number: CN-PFIZER INC-202200114094

PATIENT
  Age: 39 Year
  Sex: Female
  Weight: 75.9 kg

DRUGS (2)
  1. METHOTREXATE [Suspect]
     Active Substance: METHOTREXATE
     Indication: Neoplasm
     Dosage: 1.8 G, 1X/DAY
     Route: 041
     Dates: start: 20220106, end: 20220106
  2. CYTARABINE [Suspect]
     Active Substance: CYTARABINE
     Indication: Neoplasm
     Dosage: 3.6 G, 1X/DAY
     Route: 041
     Dates: start: 20220107, end: 20220108

REACTIONS (3)
  - Renal injury [Recovering/Resolving]
  - Blood creatinine increased [Recovering/Resolving]
  - Alanine aminotransferase increased [Recovering/Resolving]

NARRATIVE: CASE EVENT DATE: 20220107
